FAERS Safety Report 7852614-4 (Version None)
Quarter: 2011Q4

REPORT INFORMATION
  Report Type: 
  Country: None (occurrence: None)
  Receive Date: 20111026
  Receipt Date: 20111017
  Transmission Date: 20120403
  Serious: Yes (Hospitalization)
  Sender: FDA-Public Use
  Company Number: US-GLAXOSMITHKLINE-A0949925A

PATIENT
  Age: 43 Year
  Sex: Female
  Weight: 77.1 kg

DRUGS (2)
  1. TRACLEER [Concomitant]
     Indication: PRODUCT USED FOR UNKNOWN INDICATION
  2. FLOLAN [Suspect]
     Indication: PULMONARY ARTERIAL HYPERTENSION
     Dosage: 80NGKM UNKNOWN
     Route: 042
     Dates: start: 20100325

REACTIONS (3)
  - OVARIAN CYST RUPTURED [None]
  - PERITONEAL HAEMORRHAGE [None]
  - HAEMOGLOBIN DECREASED [None]
